FAERS Safety Report 13159265 (Version 2)
Quarter: 2017Q1

REPORT INFORMATION
  Report Type: Report from Study
  Country: ES (occurrence: ES)
  Receive Date: 20170127
  Receipt Date: 20170208
  Transmission Date: 20170428
  Serious: Yes (Hospitalization)
  Sender: FDA-Public Use
  Company Number: PHHO2016ES000649

PATIENT
  Age: 32 Year
  Sex: Male
  Weight: 77.5 kg

DRUGS (5)
  1. LDK378 [Suspect]
     Active Substance: CERITINIB
     Indication: NON-SMALL CELL LUNG CANCER
     Dosage: 750 MG, QD
     Route: 048
     Dates: start: 20151110, end: 20160107
  2. AMOXICILLIN W/CLAVULANIC ACID [Concomitant]
     Active Substance: AMOXICILLIN\CLAVULANIC ACID
     Indication: TRACHEOBRONCHITIS
     Dosage: 1000 (875/125) MG , UNK
     Route: 048
     Dates: start: 20151218, end: 20151224
  3. PREDNISONE. [Concomitant]
     Active Substance: PREDNISONE
     Indication: TRACHEOBRONCHITIS
     Dosage: 30 MG, UNK
     Route: 048
     Dates: start: 20151218, end: 20151222
  4. LDK378 [Suspect]
     Active Substance: CERITINIB
     Dosage: 600 MG, QD
     Route: 048
     Dates: start: 20160116
  5. PREDNISONE. [Concomitant]
     Active Substance: PREDNISONE
     Dosage: 30 MG, BID (30-30-0)
     Route: 065
     Dates: start: 20151228

REACTIONS (1)
  - Pericarditis [Recovered/Resolved]

NARRATIVE: CASE EVENT DATE: 20160107
